FAERS Safety Report 15850347 (Version 3)
Quarter: 2019Q1

REPORT INFORMATION
  Report Type: Spontaneous
  Country: US (occurrence: US)
  Receive Date: 20190121
  Receipt Date: 20190305
  Transmission Date: 20190417
  Serious: No
  Sender: FDA-Public Use
  Company Number: US-PFIZER INC-2019019773

PATIENT
  Sex: Female

DRUGS (2)
  1. DEPO-ESTRADIOL [Suspect]
     Active Substance: ESTRADIOL CYPIONATE
     Dosage: UNK
  2. DEPO-ESTRADIOL [Suspect]
     Active Substance: ESTRADIOL CYPIONATE
     Indication: HOT FLUSH
     Dosage: 5 MG, UNK

REACTIONS (4)
  - Expired product administered [Unknown]
  - Drug ineffective [Unknown]
  - Product storage error [Unknown]
  - Hair disorder [Unknown]
